FAERS Safety Report 15292177 (Version 2)
Quarter: 2025Q3

REPORT INFORMATION
  Report Type: Report from Study
  Country: EU (occurrence: EU)
  Receive Date: 20180818
  Receipt Date: 20250711
  Transmission Date: 20251020
  Serious: Yes (Other)
  Sender: AUROBINDO
  Company Number: EU-AUROBINDO-AUR-APL-2018-042421

PATIENT

DRUGS (5)
  1. FINASTERIDE [Suspect]
     Active Substance: FINASTERIDE
     Indication: Product used for unknown indication
     Route: 065
  2. TRENBOLONE ACETATE [Suspect]
     Active Substance: TRENBOLONE ACETATE
     Indication: Product used for unknown indication
     Route: 065
  3. NANDROLONE DECANOATE [Suspect]
     Active Substance: NANDROLONE DECANOATE
     Indication: Product used for unknown indication
     Route: 065
  4. TESTOSTERONE UNDECANOATE [Suspect]
     Active Substance: TESTOSTERONE UNDECANOATE
     Indication: Product used for unknown indication
     Route: 065
  5. HUMAN CHORIONIC GONADOTROPIN [Suspect]
     Active Substance: GONADOTROPHIN, CHORIONIC
     Indication: Product used for unknown indication
     Route: 065

REACTIONS (6)
  - Acne [Unknown]
  - Agitation [Unknown]
  - Erectile dysfunction [Unknown]
  - Gynaecomastia [Unknown]
  - Libido decreased [Unknown]
  - Drug abuse [Unknown]
